FAERS Safety Report 25152806 (Version 1)
Quarter: 2025Q2

REPORT INFORMATION
  Report Type: Spontaneous
  Country: RO (occurrence: RO)
  Receive Date: 20250403
  Receipt Date: 20250403
  Transmission Date: 20250717
  Serious: Yes (Other)
  Sender: NOVO NORDISK
  Company Number: None

PATIENT
  Age: 55 Year
  Sex: Male
  Weight: 99 kg

DRUGS (1)
  1. RYBELSUS [Suspect]
     Active Substance: SEMAGLUTIDE
     Indication: Type 2 diabetes mellitus
     Route: 048
     Dates: start: 20241212

REACTIONS (4)
  - Depression [Recovering/Resolving]
  - Nightmare [Recovering/Resolving]
  - Disturbance in attention [Recovering/Resolving]
  - Impaired work ability [Recovering/Resolving]

NARRATIVE: CASE EVENT DATE: 20241217
